FAERS Safety Report 4688101-4 (Version None)
Quarter: 2005Q2

REPORT INFORMATION
  Report Type: 
  Country: None (occurrence: None)
  Receive Date: 20050609
  Receipt Date: 20050526
  Transmission Date: 20051028
  Serious: Yes (Other)
  Sender: FDA-Public Use
  Company Number: 2005080533

PATIENT
  Age: 70 Year
  Sex: Male
  Weight: 95.2554 kg

DRUGS (7)
  1. BENADRYL [Suspect]
     Indication: HERPES ZOSTER
     Dosage: 2 TABS Q4H, ORAL
     Route: 048
     Dates: start: 20050101, end: 20050101
  2. ASPIRIN [Concomitant]
  3. DRUG, UNSPECIFIED (DRUG, UNSPECIFIED) [Concomitant]
  4. ROSUVASTATIN (ROSUVASTATIN) [Concomitant]
  5. FLUTICASONE PROPIONATE [Concomitant]
  6. DRUGS FOR TREATMENT OF BONE DISEASES (DRUGS FOR TREATMENT OF BONE DISE [Concomitant]
  7. CARDIAC THERAPY (CARDIAC THERAPY) [Concomitant]

REACTIONS (3)
  - ASTHENIA [None]
  - FALL [None]
  - LOSS OF CONSCIOUSNESS [None]
